FAERS Safety Report 24427894 (Version 1)
Quarter: 2024Q4

REPORT INFORMATION
  Report Type: Spontaneous
  Country: DE (occurrence: DE)
  Receive Date: 20241011
  Receipt Date: 20241011
  Transmission Date: 20250115
  Serious: Yes (Life-Threatening, Hospitalization, Other)
  Sender: SANDOZ
  Company Number: None

PATIENT
  Age: 19 Year
  Sex: Male

DRUGS (15)
  1. ANAKINRA [Suspect]
     Active Substance: ANAKINRA
     Indication: Interstitial lung disease
     Dosage: UNK
     Route: 058
  2. CYCLOPHOSPHAMIDE [Suspect]
     Active Substance: CYCLOPHOSPHAMIDE
     Indication: Interstitial lung disease
     Dosage: 1000 MG, UNKNOWN
     Route: 042
  3. CYCLOSPORINE [Suspect]
     Active Substance: CYCLOSPORINE
     Indication: Interstitial lung disease
     Dosage: GRADUALLY INCREASE OF DOSAGE UP TO 500 MG/D
     Route: 065
  4. METHYLPREDNISOLONE [Suspect]
     Active Substance: METHYLPREDNISOLONE
     Indication: Interstitial lung disease
     Dosage: UNK, QD HIGH-DOSE (UP TO 500 MG METHYLPREDNISOLONE PER DAY FOR 3 DAYS)
     Route: 042
     Dates: start: 2021
  5. MYCOPHENOLATE MOFETIL [Suspect]
     Active Substance: MYCOPHENOLATE MOFETIL
     Indication: Interstitial lung disease
     Dosage: 2 G, QD
     Route: 065
     Dates: start: 202109
  6. PREDNISOLONE [Suspect]
     Active Substance: PREDNISOLONE
     Indication: Interstitial lung disease
     Dosage: 82.2 MG, QD PREDNISOLONE COULD BE REDUCED TO A DAILY DOSAGE OF 5 MG
     Route: 042
     Dates: start: 2021
  7. RITUXIMAB [Suspect]
     Active Substance: RITUXIMAB
     Indication: Interstitial lung disease
     Dosage: 2X 1000 MG, UNKNOWN
     Route: 042
  8. TOFACITINIB [Suspect]
     Active Substance: TOFACITINIB
     Indication: Interstitial lung disease
     Dosage: FOR 3 DAY
     Route: 065
  9. ANAKINRA [Concomitant]
     Active Substance: ANAKINRA
     Indication: Interstitial lung disease
     Dosage: 10 MG, QD
     Route: 065
     Dates: start: 202108
  10. CYCLOSPORINE [Concomitant]
     Active Substance: CYCLOSPORINE
     Indication: Interstitial lung disease
     Dosage: GRADUALLY INCREASE
     Route: 065
     Dates: start: 202109, end: 2021
  11. CYCLOPHOSPHAMIDE [Concomitant]
     Active Substance: CYCLOPHOSPHAMIDE
     Indication: Interstitial lung disease
     Dosage: 1000 MG
     Route: 042
     Dates: start: 202108
  12. DARATUMUMAB [Concomitant]
     Active Substance: DARATUMUMAB
     Indication: Interstitial lung disease
     Dosage: 100 MG, QD
     Route: 058
     Dates: start: 202110
  13. DARATUMUMAB [Concomitant]
     Active Substance: DARATUMUMAB
     Dosage: 1800 MG
     Route: 058
     Dates: start: 202112
  14. RITUXIMAB [Concomitant]
     Active Substance: RITUXIMAB
     Indication: Interstitial lung disease
     Dosage: 2*1000 MG
     Route: 042
     Dates: start: 202109
  15. TOFACITINIB [Concomitant]
     Active Substance: TOFACITINIB
     Indication: Interstitial lung disease
     Dosage: 500 MG, QD
     Route: 065
     Dates: start: 2021

REACTIONS (3)
  - Sepsis [Recovering/Resolving]
  - Bacterial tracheitis [Recovering/Resolving]
  - Pseudomonas infection [Recovering/Resolving]
